FAERS Safety Report 9109205 (Version 3)
Quarter: 2013Q1

REPORT INFORMATION
  Report Type: Spontaneous
  Country: US (occurrence: US)
  Receive Date: 20130222
  Receipt Date: 20130325
  Transmission Date: 20140127
  Serious: No
  Sender: FDA-Public Use
  Company Number: US-009507513-1302USA009915

PATIENT
  Age: 75 Year
  Sex: Male

DRUGS (1)
  1. TRUSOPT [Suspect]
     Indication: INTRAOCULAR PRESSURE TEST
     Dosage: UNK, TID
     Route: 047
     Dates: start: 201002, end: 20130128

REACTIONS (2)
  - Drug dose omission [Unknown]
  - Eye disorder [Unknown]
